FAERS Safety Report 6665210-1 (Version None)
Quarter: 2010Q1

REPORT INFORMATION
  Report Type: 
  Country: None (occurrence: None)
  Receive Date: 20100331
  Receipt Date: 20100329
  Transmission Date: 20100710
  Serious: Yes (Other)
  Sender: FDA-Public Use
  Company Number: RB-05666-2010

PATIENT
  Age: 42 Year
  Sex: Female

DRUGS (3)
  1. MUCINEX [Suspect]
     Dosage: SEE IMAGE
     Route: 048
     Dates: start: 20100327
  2. MUCINEX [Suspect]
     Dosage: SEE IMAGE
     Route: 048
     Dates: start: 20100328
  3. MUCINEX [Suspect]

REACTIONS (4)
  - AGITATION [None]
  - INSOMNIA [None]
  - NERVOUSNESS [None]
  - TREMOR [None]
